FAERS Safety Report 23417659 (Version 2)
Quarter: 2025Q1

REPORT INFORMATION
  Report Type: Spontaneous
  Country: US (occurrence: US)
  Receive Date: 20240118
  Receipt Date: 20250115
  Transmission Date: 20250409
  Serious: No
  Sender: SK LIFE SCIENCE
  Company Number: US-SK LIFE SCIENCE, INC-SKPVG-2023-001141

PATIENT

DRUGS (13)
  1. XCOPRI [Suspect]
     Active Substance: CENOBAMATE
     Indication: Epilepsy
     Dosage: 12.5 MILLIGRAM, QD
     Route: 048
     Dates: start: 20230601, end: 20230627
  2. XCOPRI [Suspect]
     Active Substance: CENOBAMATE
     Indication: Frontal lobe epilepsy
     Dosage: 25 MILLIGRAM, QD
     Route: 048
     Dates: start: 20230628, end: 20230724
  3. XCOPRI [Suspect]
     Active Substance: CENOBAMATE
     Dosage: 50 MILLIGRAM, QD
     Route: 048
     Dates: start: 20230725, end: 20230827
  4. XCOPRI [Suspect]
     Active Substance: CENOBAMATE
     Dosage: 100 MILLIGRAM, QD
     Route: 048
     Dates: start: 20230828, end: 2023
  5. XCOPRI [Suspect]
     Active Substance: CENOBAMATE
     Dosage: 150MG ONCE DAILY; SPLITS A 100MG TABLET AND TAKES ONE AND ONE-HALF TABLET FOR A 150MG DOSE
     Route: 048
     Dates: start: 20230926, end: 20231026
  6. XCOPRI [Suspect]
     Active Substance: CENOBAMATE
     Dosage: 150 MILLIGRAM, A DOSE A BEDTIME
     Route: 048
     Dates: start: 20231027
  7. XCOPRI [Suspect]
     Active Substance: CENOBAMATE
     Dosage: 100 MILLIGRAM, ONCE DAILY AT NIGHT
     Route: 048
  8. KEPPRA [Concomitant]
     Active Substance: LEVETIRACETAM
     Indication: Product used for unknown indication
     Dosage: UNK, QD
     Route: 065
  9. KLONOPIN [Concomitant]
     Active Substance: CLONAZEPAM
     Indication: Product used for unknown indication
     Route: 065
  10. SIMVASTATIN [Concomitant]
     Active Substance: SIMVASTATIN
     Indication: Product used for unknown indication
     Route: 065
  11. ELIQUIS [Concomitant]
     Active Substance: APIXABAN
     Indication: Product used for unknown indication
     Route: 065
  12. CLOBAZAM [Concomitant]
     Active Substance: CLOBAZAM
     Indication: Product used for unknown indication
     Route: 065
  13. ZONISAMIDE [Concomitant]
     Active Substance: ZONISAMIDE
     Indication: Product used for unknown indication
     Route: 065

REACTIONS (23)
  - Petit mal epilepsy [Not Recovered/Not Resolved]
  - Seizure [Not Recovered/Not Resolved]
  - Wrong technique in product usage process [Recovered/Resolved]
  - Product prescribing error [Recovered/Resolved]
  - Anger [Not Recovered/Not Resolved]
  - Agitation [Not Recovered/Not Resolved]
  - Drug intolerance [Unknown]
  - Drug interaction [Unknown]
  - Indifference [Unknown]
  - Bradyphrenia [Recovering/Resolving]
  - Communication disorder [Recovering/Resolving]
  - Seizure [Unknown]
  - Speech disorder [Recovering/Resolving]
  - Mental impairment [Recovering/Resolving]
  - Fatigue [Not Recovered/Not Resolved]
  - Cognitive disorder [Not Recovered/Not Resolved]
  - Aggression [Not Recovered/Not Resolved]
  - Depressed mood [Not Recovered/Not Resolved]
  - Feeling drunk [Not Recovered/Not Resolved]
  - Visual impairment [Recovered/Resolved]
  - Dizziness [Not Recovered/Not Resolved]
  - Memory impairment [Unknown]
  - Disturbance in attention [Not Recovered/Not Resolved]

NARRATIVE: CASE EVENT DATE: 20230926
